FAERS Safety Report 13897148 (Version 1)
Quarter: 2017Q3

REPORT INFORMATION
  Report Type: Spontaneous
  Country: US (occurrence: US)
  Receive Date: 20170823
  Receipt Date: 20170823
  Transmission Date: 20171127
  Serious: No
  Sender: FDA-Public Use
  Company Number: US-BAYER-2017-158233

PATIENT
  Sex: Female

DRUGS (1)
  1. MIRALAX [Suspect]
     Active Substance: POLYETHYLENE GLYCOL 3350
     Dosage: ;NOT AVAIL NOT AVAILABLE
     Route: 065

REACTIONS (4)
  - Off label use [Unknown]
  - Product quality issue [None]
  - Drug effect delayed [Unknown]
  - Inappropriate schedule of drug administration [Unknown]
